FAERS Safety Report 4864569-5 (Version None)
Quarter: 2005Q4

REPORT INFORMATION
  Report Type: 
  Country: None (occurrence: None)
  Receive Date: 20051222
  Receipt Date: 20051208
  Transmission Date: 20060501
  Serious: Yes (Death, Other)
  Sender: FDA-Public Use
  Company Number: FR-ABBOTT-05P-056-0319433-00

PATIENT
  Age: 38 Year
  Sex: Female
  Weight: 50 kg

DRUGS (11)
  1. NORVIR [Suspect]
     Indication: HIV INFECTION
     Route: 048
     Dates: start: 20050515, end: 20050720
  2. TENOFOVIR [Suspect]
     Indication: HIV INFECTION
     Route: 048
     Dates: start: 20050121, end: 20050130
  3. TENOFOVIR [Suspect]
     Route: 048
     Dates: start: 20050515, end: 20050720
  4. ENFUVIRTIDE [Suspect]
     Indication: HIV INFECTION
     Route: 048
     Dates: start: 20050121, end: 20050720
  5. FOZAMPRENAVIR [Suspect]
     Indication: HIV INFECTION
     Route: 048
     Dates: start: 20050515, end: 20050720
  6. KALETRA [Concomitant]
     Indication: HIV INFECTION
     Route: 048
     Dates: start: 20050121, end: 20050512
  7. GENTAMICIN [Concomitant]
     Indication: DRUG USE FOR UNKNOWN INDICATION
     Route: 042
     Dates: start: 20050113, end: 20050127
  8. NEVIRAPINE [Concomitant]
     Indication: HIV INFECTION
     Dates: start: 20010901
  9. ZALCITABINE [Concomitant]
     Indication: HIV INFECTION
     Dates: start: 20010901
  10. LAMIVUDINE [Concomitant]
     Indication: HIV INFECTION
     Dates: start: 20010901
  11. NELFINAVIR [Concomitant]
     Indication: HIV INFECTION
     Dates: start: 20010901

REACTIONS (10)
  - AORTIC VALVE INCOMPETENCE [None]
  - CARDIAC ARREST [None]
  - CARDIOGENIC SHOCK [None]
  - CARDIOMEGALY [None]
  - DYSPNOEA EXERTIONAL [None]
  - EJECTION FRACTION ABNORMAL [None]
  - ENDOCARDITIS [None]
  - MULTI-ORGAN FAILURE [None]
  - PNEUMONIA [None]
  - VENTRICULAR DYSFUNCTION [None]
